FAERS Safety Report 22328493 (Version 1)
Quarter: 2023Q2

REPORT INFORMATION
  Report Type: Report from Study
  Country: US (occurrence: US)
  Receive Date: 20230517
  Receipt Date: 20230517
  Transmission Date: 20230722
  Serious: Yes (Death)
  Sender: FDA-Public Use
  Company Number: US-ABBVIE-22K-163-4417408-00

PATIENT
  Age: 52 Year
  Sex: Female

DRUGS (29)
  1. VENCLEXTA [Suspect]
     Active Substance: VENETOCLAX
     Indication: Acute leukaemia
     Dosage: FORM STRENGTH: 100 MILLIGRAM
     Route: 048
  2. VENCLEXTA [Suspect]
     Active Substance: VENETOCLAX
     Indication: Acute leukaemia
     Dosage: FORM STRENGTH: 200 MILLIGRAM
     Route: 048
  3. SODIUM CHLORIDE [Concomitant]
     Active Substance: SODIUM CHLORIDE
     Indication: Product used for unknown indication
     Dosage: FORM STRENGTH: 0.9 PERCENT
     Route: 042
  4. TRIAMTERENE AND HYDROCHLOROTHIAZIDE [Concomitant]
     Active Substance: HYDROCHLOROTHIAZIDE\TRIAMTERENE
     Indication: Product used for unknown indication
     Dosage: 37.5MG-25MG
     Route: 048
  5. ATIVAN [Concomitant]
     Active Substance: LORAZEPAM
     Indication: Nausea
     Dosage: FORM STRENGTH: 0.5 MILLIGRAM
     Route: 042
  6. CAMPHOR;MENTHOL [Concomitant]
     Indication: Pruritus
     Dosage: APPLY LOTION AS NEEDED
     Route: 061
  7. LIDODERM [Concomitant]
     Active Substance: LIDOCAINE
     Indication: Product used for unknown indication
     Dosage: PATCH; FORM STRENGTH: 5 PERCENT
     Route: 062
  8. CALCIUM CARBONATE;MAGNESIUM HYDROXIDE [Concomitant]
     Indication: Dyspepsia
     Route: 048
  9. CLARITIN [Concomitant]
     Active Substance: LORATADINE
     Indication: Product used for unknown indication
     Dosage: FORM STRENGTH: 10 MILLIGRAM
     Route: 048
  10. DEXTROSE [Concomitant]
     Active Substance: DEXTROSE\DEXTROSE MONOHYDRATE
     Indication: Product used for unknown indication
     Dosage: DEXTROSE 10% IN WATER HYPOGLYCEMIA; FORM STRENGTH: 12.5 GRAM
     Route: 042
  11. OXYCODONE [Concomitant]
     Active Substance: OXYCODONE
     Indication: Pain
     Dosage: 1 TAB ORAL EVERY 4 HOURS; AS NEEDED; FORM STRENGTH: 15 MILLIGRAM
     Route: 048
  12. DEXTROSE [Concomitant]
     Active Substance: DEXTROSE\DEXTROSE MONOHYDRATE
     Indication: Product used for unknown indication
     Dosage: FREQUENCY: 4 TABS CHEW ORAL; AS NEEDED
     Route: 048
  13. MIRALAX [Concomitant]
     Active Substance: POLYETHYLENE GLYCOL 3350
     Indication: Constipation
     Dosage: POWDER; FORM STRENGTH: 17 GRAM
     Route: 048
  14. CEFEPIME [Concomitant]
     Active Substance: CEFEPIME HYDROCHLORIDE
     Indication: Product used for unknown indication
     Dosage: IV PIGGYBACK -2GM INJECTION; FORM STRENGTH: 2 GRAM
     Route: 042
  15. OMEPRAZOLE [Concomitant]
     Active Substance: OMEPRAZOLE
     Indication: Product used for unknown indication
     Dosage: MAINTENANCE THERAPY; FORM STRENGTH: 20 MILLIGRAM
     Route: 048
  16. CELECOXIB [Concomitant]
     Active Substance: CELECOXIB
     Indication: Product used for unknown indication
     Dosage: MAINTENANCE THERAPY; FORM STRENGTH: 200 MILLIGRAM
     Route: 048
  17. DIFLUCAN [Concomitant]
     Active Substance: FLUCONAZOLE
     Indication: Product used for unknown indication
     Dosage: FORM STRENGTH: 200 MILLIGRAM
     Route: 048
  18. LOSARTAN [Concomitant]
     Active Substance: LOSARTAN
     Indication: Product used for unknown indication
     Dosage: FORM STRENGTH: 25 MILLIGRAM
     Route: 048
  19. ACYCLOVIR [Concomitant]
     Active Substance: ACYCLOVIR
     Indication: Product used for unknown indication
     Dosage: 1 TABLET ORAL TWICE DAILY
     Route: 048
  20. CYCLOBENZAPRINE [Concomitant]
     Active Substance: CYCLOBENZAPRINE
     Indication: Product used for unknown indication
     Dosage: NIGHTLY; FORM STRENGTH: 5 MILLIGRAM
     Route: 048
  21. PROCHLORPERAZINE [Concomitant]
     Active Substance: PROCHLORPERAZINE
     Indication: Nausea
     Dosage: FORM STRENGTH: 5 MILLIGRAM
     Route: 042
  22. TRAZODONE [Concomitant]
     Active Substance: TRAZODONE HYDROCHLORIDE
     Indication: Insomnia
     Dosage: AT BEDTIME; FORM STRENGTH: 50 MILLIGRAM
     Route: 048
  23. HEPARIN SODIUM [Concomitant]
     Active Substance: HEPARIN SODIUM
     Indication: Product used for unknown indication
     Dosage: AS NEEDED FOR FLUSH; FORM STRENGTH: 5 MILLILITRE(S)
  24. NYSTATIN [Concomitant]
     Active Substance: NYSTATIN
     Indication: Product used for unknown indication
     Dosage: TIME INTERVAL: 0.33333333 DAYS: THREE TIMES A DAY WHILE AWAKE; FORM STRENGTH: 5- MILLILITRE(S)
     Route: 048
  25. ONDANSETRON [Concomitant]
     Active Substance: ONDANSETRON
     Indication: Nausea
     Dosage: 8MG= 4 ML
     Route: 042
  26. SENNOSIDES [Concomitant]
     Active Substance: SENNOSIDES
     Indication: Product used for unknown indication
     Dosage: FORM STRENGTH: 8.6 MILLIGRAM
     Route: 048
  27. IBUPROFEN [Concomitant]
     Active Substance: IBUPROFEN
     Indication: Product used for unknown indication
     Dosage: THERAPY MAINTENANCE; FORM STRENGTH: 600 MILLIGRAM
     Route: 048
  28. BACLOFEN [Concomitant]
     Active Substance: BACLOFEN
     Indication: Product used for unknown indication
     Dosage: THERAPY MAINTENANCE; FORM STRENGTH: 10 MILLIGRAM
     Route: 048
  29. CYTARABINE\HYDROCORTISONE\METHOTREXATE [Concomitant]
     Active Substance: CYTARABINE\HYDROCORTISONE\METHOTREXATE
     Indication: Product used for unknown indication
     Dosage: INJECTION VIAL ONCE DAY OF TREATMENT
     Route: 037

REACTIONS (3)
  - Death [Fatal]
  - Off label use [Unknown]
  - Off label use [Unknown]

NARRATIVE: CASE EVENT DATE: 20220728
